FAERS Safety Report 19112957 (Version 7)
Quarter: 2022Q2

REPORT INFORMATION
  Report Type: Report from Study
  Country: US (occurrence: US)
  Receive Date: 20210408
  Receipt Date: 20220613
  Transmission Date: 20220720
  Serious: No
  Sender: FDA-Public Use
  Company Number: NVSC2021US074345

PATIENT
  Age: 40 Year
  Sex: Male

DRUGS (2)
  1. KESIMPTA [Suspect]
     Active Substance: OFATUMUMAB
     Indication: Multiple sclerosis
     Dosage: UNK
     Route: 065
  2. KESIMPTA [Suspect]
     Active Substance: OFATUMUMAB
     Dosage: 20 MG, QMO
     Route: 058
     Dates: start: 20210325

REACTIONS (11)
  - Influenza like illness [Unknown]
  - Headache [Unknown]
  - Chills [Unknown]
  - Pain [Unknown]
  - Seasonal allergy [Unknown]
  - Rhinorrhoea [Unknown]
  - Product dose omission issue [Unknown]
  - Acne [Unknown]
  - Product supply issue [Unknown]
  - COVID-19 [Unknown]
  - Product storage error [Unknown]

NARRATIVE: CASE EVENT DATE: 20220512
